FAERS Safety Report 5199876-2 (Version None)
Quarter: 2006Q4

REPORT INFORMATION
  Report Type: 
  Country: None (occurrence: None)
  Receive Date: 20061229
  Receipt Date: 20061222
  Transmission Date: 20070319
  Serious: No
  Sender: FDA-Public Use
  Company Number: B0419215A

PATIENT
  Age: 29 Year
  Sex: Male
  Weight: 79.8331 kg

DRUGS (3)
  1. LEXIVA TABLET (FOSAMPRENAVIR) [Suspect]
     Indication: PROPHYLAXIS AGAINST HIV INFECTION
     Dosage: 700 MG TWICE PER DAY ORAL
     Route: 048
     Dates: start: 20060308, end: 20060316
  2. COMBIVIR [Suspect]
     Indication: PROPHYLAXIS AGAINST HIV INFECTION
     Dosage: 1 TABLET TWICE PER DAY ORAL
     Route: 048
     Dates: start: 20060308, end: 20060316
  3. RITONAVIR TABLET (RITONAVIR) [Suspect]
     Indication: PROPHYLAXIS AGAINST HIV INFECTION
     Dosage: 100 MG TWICE PER DAY ORAL
     Route: 048
     Dates: start: 20060308, end: 20060316

REACTIONS (2)
  - CYTOLYTIC HEPATITIS [None]
  - ERYTHEMA MULTIFORME [None]
